FAERS Safety Report 13184052 (Version 1)
Quarter: 2017Q1

REPORT INFORMATION
  Report Type: Spontaneous
  Country: FR (occurrence: FR)
  Receive Date: 20170203
  Receipt Date: 20170203
  Transmission Date: 20170428
  Serious: Yes (Other)
  Sender: FDA-Public Use
  Company Number: FR-BRISTOL-MYERS SQUIBB COMPANY-BMS-2017-006893

PATIENT
  Age: 73 Year
  Sex: Male

DRUGS (4)
  1. APIXABAN [Suspect]
     Active Substance: APIXABAN
     Indication: ATRIAL TACHYCARDIA
     Dosage: 5 MG, BID
     Route: 048
     Dates: start: 2014
  2. IRBESARTAN. [Concomitant]
     Active Substance: IRBESARTAN
     Indication: PRODUCT USED FOR UNKNOWN INDICATION
     Route: 065
  3. SOTALOL. [Concomitant]
     Active Substance: SOTALOL
     Indication: PRODUCT USED FOR UNKNOWN INDICATION
     Dosage: 80 MG, BID
     Route: 065
  4. ALLOPURINOL. [Concomitant]
     Active Substance: ALLOPURINOL
     Indication: GOUT
     Dosage: 200 MG, QD
     Route: 065

REACTIONS (6)
  - Product use issue [Unknown]
  - Hypertrophic cardiomyopathy [Unknown]
  - Retinal vascular occlusion [Unknown]
  - Atrial tachycardia [Unknown]
  - Cataract [Unknown]
  - Vision blurred [Unknown]
